FAERS Safety Report 12631579 (Version 2)
Quarter: 2016Q3

REPORT INFORMATION
  Report Type: Spontaneous
  Country: US (occurrence: US)
  Receive Date: 20160808
  Receipt Date: 20160808
  Transmission Date: 20161109
  Serious: No
  Sender: FDA-Public Use
  Company Number: US-BEH-2015054754

PATIENT
  Sex: Male
  Weight: 75 kg

DRUGS (16)
  1. OMEPRAZOLE. [Concomitant]
     Active Substance: OMEPRAZOLE
  2. ACETAMINOPHEN. [Concomitant]
     Active Substance: ACETAMINOPHEN
  3. DIPHENHYDRAMINE. [Concomitant]
     Active Substance: DIPHENHYDRAMINE
  4. ASMANEX [Concomitant]
     Active Substance: MOMETASONE FUROATE
  5. FEXOFENADINE [Concomitant]
     Active Substance: FEXOFENADINE\FEXOFENADINE HYDROCHLORIDE
  6. FINASTERIDE. [Concomitant]
     Active Substance: FINASTERIDE
  7. VITAMIN C [Concomitant]
     Active Substance: ASCORBIC ACID
  8. FISH OIL [Concomitant]
     Active Substance: FISH OIL
  9. CALCIUM [Concomitant]
     Active Substance: CALCIUM
  10. ALPRAZOLAM. [Concomitant]
     Active Substance: ALPRAZOLAM
  11. HIZENTRA [Suspect]
     Active Substance: HUMAN IMMUNOGLOBULIN G
     Indication: HYPER IGM SYNDROME
     Dosage: 4 GM 20 ML VIAL
     Route: 058
  12. CLONAZEPAM. [Concomitant]
     Active Substance: CLONAZEPAM
  13. EPIPEN [Concomitant]
     Active Substance: EPINEPHRINE
     Indication: ANAPHYLACTIC REACTION
  14. MONTELUKAST [Concomitant]
     Active Substance: MONTELUKAST SODIUM
  15. VENTOLIN [Concomitant]
     Active Substance: ALBUTEROL SULFATE
  16. RANITIDINE. [Concomitant]
     Active Substance: RANITIDINE

REACTIONS (2)
  - Drug dose omission [Unknown]
  - Malaise [Unknown]
